FAERS Safety Report 15533609 (Version 1)
Quarter: 2018Q4

REPORT INFORMATION
  Report Type: Spontaneous
  Country: US (occurrence: US)
  Receive Date: 20181019
  Receipt Date: 20181019
  Transmission Date: 20190205
  Serious: No
  Sender: FDA-Public Use
  Company Number: US-DSJP-DSU-2018-112254

PATIENT
  Sex: Female

DRUGS (1)
  1. WELCHOL [Suspect]
     Active Substance: COLESEVELAM HYDROCHLORIDE
     Indication: PRODUCT USED FOR UNKNOWN INDICATION
     Dosage: 3.75 G, UNK (SIPPING IT ALL DAY LONG)
     Route: 048
     Dates: end: 2018

REACTIONS (2)
  - Incorrect product administration duration [Recovered/Resolved]
  - No adverse event [Recovered/Resolved]
